FAERS Safety Report 5928342-9 (Version None)
Quarter: 2008Q4

REPORT INFORMATION
  Report Type: 
  Country: None (occurrence: None)
  Receive Date: 20081023
  Receipt Date: 20081014
  Transmission Date: 20090506
  Serious: Yes (Hospitalization)
  Sender: FDA-Public Use
  Company Number: US-WATSON-2008-05552

PATIENT
  Sex: Female

DRUGS (3)
  1. MYSOLINE [Suspect]
     Indication: CONVULSION
     Dosage: 250 MG, BID
     Route: 048
     Dates: start: 20080807
  2. DILANTIN                           /00017401/ [Concomitant]
     Indication: CONVULSION
     Dosage: 200 MG, QHS
     Route: 048
     Dates: start: 19590101
  3. DILANTIN                           /00017401/ [Concomitant]
     Dosage: 150 MG, QAM
     Route: 048
     Dates: start: 19590101

REACTIONS (4)
  - CONTUSION [None]
  - DRUG INEFFECTIVE [None]
  - GRAND MAL CONVULSION [None]
  - THERAPEUTIC RESPONSE UNEXPECTED WITH DRUG SUBSTITUTION [None]
